FAERS Safety Report 8530486-2 (Version None)
Quarter: 2012Q3

REPORT INFORMATION
  Report Type: 
  Country: None (occurrence: None)
  Receive Date: 20120723
  Receipt Date: 20120717
  Transmission Date: 20120928
  Serious: Yes (Other)
  Sender: FDA-Public Use
  Company Number: US-CELGENEUS-163-20785-12071824

PATIENT

DRUGS (2)
  1. THALIDOMIDE [Suspect]
     Dosage: 200 MILLIGRAM
     Route: 048
  2. THALIDOMIDE [Suspect]
     Dosage: 400-1000MG
     Route: 048

REACTIONS (17)
  - CONSTIPATION [None]
  - THROMBOCYTOPENIA [None]
  - DECREASED APPETITE [None]
  - METABOLIC DISORDER [None]
  - NERVOUS SYSTEM DISORDER [None]
  - PAIN [None]
  - VOMITING [None]
  - DISEASE PROGRESSION [None]
  - CARDIOVASCULAR DISORDER [None]
  - ANAEMIA [None]
  - NAUSEA [None]
  - SKIN DISORDER [None]
  - PERIPHERAL SENSORY NEUROPATHY [None]
  - FATIGUE [None]
  - EMBOLISM [None]
  - SEDATION [None]
  - NEUTROPENIA [None]
